APPROVED DRUG PRODUCT: ADVIL PM
Active Ingredient: DIPHENHYDRAMINE CITRATE; IBUPROFEN
Strength: 38MG;200MG
Dosage Form/Route: TABLET;ORAL
Application: N021394 | Product #001
Applicant: HALEON US HOLDINGS LLC
Approved: Dec 21, 2005 | RLD: Yes | RS: Yes | Type: OTC